FAERS Safety Report 16615960 (Version 1)
Quarter: 2019Q3

REPORT INFORMATION
  Report Type: Spontaneous
  Country: US (occurrence: US)
  Receive Date: 20190610
  Receipt Date: 20190610
  Transmission Date: 20191004
  Serious: No
  Sender: FDA-Public Use
  Company Number: None

PATIENT
  Age: 62 Year
  Sex: Female

DRUGS (1)
  1. FORTEO [Suspect]
     Active Substance: TERIPARATIDE
     Indication: SENILE OSTEOPOROSIS
     Route: 058
     Dates: start: 20180828, end: 20190603

REACTIONS (4)
  - Urticaria [None]
  - Rash generalised [None]
  - Injection site pain [None]
  - Cough [None]

NARRATIVE: CASE EVENT DATE: 20190529
